FAERS Safety Report 4585645-0 (Version None)
Quarter: 2005Q1

REPORT INFORMATION
  Report Type: 
  Country: None (occurrence: None)
  Receive Date: 20050217
  Receipt Date: 20050208
  Transmission Date: 20050727
  Serious: Yes (Hospitalization)
  Sender: FDA-Public Use
  Company Number: FR-JNJFOC-20050203112

PATIENT
  Age: 79 Year
  Sex: Male

DRUGS (7)
  1. TOPALGIC [Suspect]
     Indication: DRUG USE FOR UNKNOWN INDICATION
     Route: 049
  2. MYOLASTAN [Concomitant]
     Route: 049
  3. NEURONTIN [Concomitant]
     Route: 049
  4. OMEPRAZOLE [Concomitant]
     Route: 065
  5. ACETAMINOPHEN [Concomitant]
     Route: 065
  6. KARDEGIC [Concomitant]
     Route: 065
  7. EQUANIL [Concomitant]
     Route: 065

REACTIONS (5)
  - AGITATION [None]
  - CONFUSIONAL STATE [None]
  - FAECALOMA [None]
  - FALL [None]
  - URINARY RETENTION [None]
